FAERS Safety Report 14565441 (Version 1)
Quarter: 2018Q1

REPORT INFORMATION
  Report Type: Spontaneous
  Country: GB (occurrence: GB)
  Receive Date: 20180223
  Receipt Date: 20180223
  Transmission Date: 20180509
  Serious: Yes (Other)
  Sender: FDA-Public Use
  Company Number: GB-AMGEN-GBRSP2018024440

PATIENT
  Age: 49 Year
  Sex: Male

DRUGS (2)
  1. METHADONE [Concomitant]
     Active Substance: METHADONE HYDROCHLORIDE
     Dosage: UNK
     Route: 065
  2. ENBREL [Suspect]
     Active Substance: ETANERCEPT
     Indication: PSORIASIS
     Dosage: 50 MG, WEEKLY
     Route: 058

REACTIONS (8)
  - Lower respiratory tract infection [Unknown]
  - Drug ineffective [Unknown]
  - Influenza [Unknown]
  - Abdominal discomfort [Unknown]
  - Depressed mood [Recovered/Resolved]
  - Stress [Recovered/Resolved]
  - Migraine [Unknown]
  - Psoriasis [Recovered/Resolved]
